FAERS Safety Report 12614906 (Version 1)
Quarter: 2016Q3

REPORT INFORMATION
  Report Type: Spontaneous
  Country: US (occurrence: US)
  Receive Date: 20160802
  Receipt Date: 20160802
  Transmission Date: 20161109
  Serious: No
  Sender: FDA-Public Use
  Company Number: US-PERRIGO-15US006223

PATIENT
  Age: 56 Year
  Sex: Male
  Weight: 83.9 kg

DRUGS (2)
  1. MINOXIDIL. [Suspect]
     Active Substance: MINOXIDIL
     Dosage: 2 DROPS, QD
     Route: 061
     Dates: start: 20150524, end: 20150529
  2. MINOXIDIL. [Suspect]
     Active Substance: MINOXIDIL
     Indication: ALOPECIA
     Dosage: 2 TO 3 DROPS, BID
     Route: 061
     Dates: start: 20150522, end: 20150523

REACTIONS (4)
  - Headache [Recovered/Resolved]
  - Application site pain [Recovered/Resolved]
  - Incorrect dose administered [Recovered/Resolved]
  - Inappropriate schedule of drug administration [Recovered/Resolved]

NARRATIVE: CASE EVENT DATE: 20150522
